FAERS Safety Report 8369741-8 (Version None)
Quarter: 2012Q1

REPORT INFORMATION
  Report Type: 
  Country: None (occurrence: None)
  Receive Date: 20120323
  Receipt Date: 20111110
  Transmission Date: 20120608
  Serious: Yes (Disabling, Other)
  Sender: FDA-Public Use
  Company Number: 163-21880-11080271

PATIENT
  Age: 72 Year
  Sex: Male

DRUGS (12)
  1. GLUCOTROL XL [Concomitant]
  2. PRAVACHOL [Concomitant]
  3. GLIPIZIDE [Concomitant]
  4. LOPRESSOR [Concomitant]
  5. ASPIRIN [Concomitant]
  6. PRAVASTATIN [Concomitant]
  7. METOPROLOL [Concomitant]
  8. DIAVAN [Concomitant]
  9. METFORMIN HCL [Concomitant]
  10. REVLIMID [Suspect]
     Indication: MYELODYSPLASTIC SYNDROME
     Dosage: 10 MG, DAILY X 28 DAYS, PO
     Route: 048
     Dates: start: 20101031, end: 20110707
  11. JANUVIA [Concomitant]
  12. GLUCOPHAGE XR (METFORMIN HYDROCHLORIDE) [Concomitant]

REACTIONS (3)
  - DISEASE PROGRESSION [None]
  - BONE MARROW FAILURE [None]
  - MYELODYSPLASTIC SYNDROME [None]
